FAERS Safety Report 7715625-5 (Version None)
Quarter: 2011Q3

REPORT INFORMATION
  Report Type: 
  Country: None (occurrence: None)
  Receive Date: 20110811
  Receipt Date: 20110628
  Transmission Date: 20111222
  Serious: Yes (Other)
  Sender: FDA-Public Use
  Company Number: AUR-APL-2011-03778

PATIENT
  Age: 60 Year
  Sex: Female
  Weight: 70.29 kg

DRUGS (4)
  1. CYMBALTA [Concomitant]
  2. LISINOPRIL [Concomitant]
  3. DILANTIN [Suspect]
     Indication: COMPLEX PARTIAL SEIZURES
     Dosage: 300 MG (100 MG, 3 IN 1 D), ORAL
     Route: 048
     Dates: start: 20110401
  4. LEVETIRACETAM [Suspect]
     Indication: COMPLEX PARTIAL SEIZURES
     Dosage: ONE AND A HALF TABLET (1 D)
     Dates: start: 20110401

REACTIONS (2)
  - COMPLEX PARTIAL SEIZURES [None]
  - DRUG INEFFECTIVE [None]
